FAERS Safety Report 10036069 (Version 2)
Quarter: 2014Q1

REPORT INFORMATION
  Report Type: Report from Study
  Country: JP (occurrence: JP)
  Receive Date: 20140325
  Receipt Date: 20140325
  Transmission Date: 20141002
  Serious: Yes (Hospitalization)
  Sender: FDA-Public Use
  Company Number: JP-ROCHE-1314787

PATIENT
  Age: 86 Year
  Sex: Female
  Weight: 29 kg

DRUGS (2)
  1. BEVACIZUMAB [Suspect]
     Indication: MALIGNANT GLIOMA
     Route: 041
     Dates: start: 20131113, end: 20131113
  2. PREDNISOLONE [Concomitant]
     Route: 048
     Dates: start: 20131105, end: 20131119

REACTIONS (4)
  - Cerebral haemorrhage [Recovering/Resolving]
  - Tumour haemorrhage [Recovering/Resolving]
  - Hemiplegia [Recovering/Resolving]
  - Hemiplegia [Recovering/Resolving]
